FAERS Safety Report 9549462 (Version 7)
Quarter: 2014Q2

REPORT INFORMATION
  Report Type: Spontaneous
  Country: US (occurrence: US)
  Receive Date: 20130924
  Receipt Date: 20140606
  Transmission Date: 20141212
  Serious: Yes (Hospitalization, Other)
  Sender: FDA-Public Use
  Company Number: US-009507513-1201USA00881

PATIENT
  Sex: Female
  Weight: 56.8 kg

DRUGS (12)
  1. FOSAMAX [Suspect]
     Indication: RHEUMATOID ARTHRITIS
     Dosage: 10 MG, UNK
     Route: 048
     Dates: start: 1995
  2. FOSAMAX [Suspect]
     Dosage: 35 MG, UNK
     Route: 048
  3. FOSAMAX [Suspect]
     Dosage: 70 MG, QW
     Route: 048
  4. FOSAMAX [Suspect]
     Dosage: 40 MG, UNK
     Route: 048
  5. BONIVA [Suspect]
  6. PREDNISONE [Concomitant]
     Indication: RHEUMATOID ARTHRITIS
     Dosage: 7-8 MG, QD
  7. METHOTREXATE [Concomitant]
     Indication: RHEUMATOID ARTHRITIS
  8. IMURAN (AZATHIOPRINE) [Concomitant]
     Indication: RHEUMATOID ARTHRITIS
  9. ARISTOCORT (TRIAMCINOLONE) [Concomitant]
     Indication: OSTEOARTHRITIS
     Dosage: UNK
     Route: 014
     Dates: start: 19950209
  10. REMICADE [Concomitant]
     Indication: RHEUMATOID ARTHRITIS
  11. CORTICOSTEROIDS (UNSPECIFIED) [Concomitant]
     Indication: RHEUMATOID ARTHRITIS
  12. CORTISONE [Concomitant]
     Indication: OSTEOARTHRITIS
     Route: 014

REACTIONS (67)
  - Gastrooesophageal reflux disease [Unknown]
  - Off label use [Unknown]
  - Drug ineffective [Unknown]
  - Femur fracture [Recovered/Resolved]
  - Intramedullary rod insertion [Unknown]
  - Hip fracture [Unknown]
  - Hip fracture [Unknown]
  - Intramedullary rod insertion [Unknown]
  - Joint dislocation [Unknown]
  - Deep vein thrombosis [Unknown]
  - Pyoderma gangrenosum [Unknown]
  - Basal cell carcinoma [Unknown]
  - Rheumatoid lung [Unknown]
  - Pneumonia [Unknown]
  - Cellulitis [Unknown]
  - Femur fracture [Recovered/Resolved]
  - Osteoporosis [Unknown]
  - Rib fracture [Unknown]
  - Skeletal injury [Unknown]
  - Papule [Recovering/Resolving]
  - Pubis fracture [Recovered/Resolved]
  - Osteoarthritis [Unknown]
  - Wrist fracture [Unknown]
  - Bursitis [Unknown]
  - Osteopenia [Unknown]
  - Bursitis [Unknown]
  - Fall [Unknown]
  - Aortic valve incompetence [Unknown]
  - Left ventricular hypertrophy [Unknown]
  - Periarthritis [Unknown]
  - Osteomyelitis [Recovering/Resolving]
  - Blood urine present [Unknown]
  - Spinal osteoarthritis [Unknown]
  - Tricuspid valve incompetence [Unknown]
  - Hypertension [Unknown]
  - Limb injury [Unknown]
  - Glucose tolerance impaired [Unknown]
  - Deep vein thrombosis [Unknown]
  - Hypercholesterolaemia [Unknown]
  - Dermatitis [Unknown]
  - Anaemia [Unknown]
  - Phlebitis [Unknown]
  - Coagulopathy [Unknown]
  - Mitral valve incompetence [Unknown]
  - Fall [Unknown]
  - Oestrogen deficiency [Unknown]
  - Contusion [Unknown]
  - Rib fracture [Recovering/Resolving]
  - Radiculopathy [Unknown]
  - Pelvic fracture [Unknown]
  - Spondylolisthesis [Unknown]
  - Bursitis [Unknown]
  - Fall [Unknown]
  - Pyrexia [Unknown]
  - Gastrointestinal disorder [Unknown]
  - Depression [Unknown]
  - Peptic ulcer [Unknown]
  - Pain [Not Recovered/Not Resolved]
  - Rheumatoid nodule [Unknown]
  - Skin neoplasm excision [Unknown]
  - Herpes zoster [Unknown]
  - Telangiectasia [Unknown]
  - Actinic keratosis [Unknown]
  - Forearm fracture [Unknown]
  - Oophorectomy [Unknown]
  - Drug intolerance [Unknown]
  - Nausea [Unknown]
